FAERS Safety Report 6433677-X (Version None)
Quarter: 2009Q4

REPORT INFORMATION
  Report Type: 
  Country: None (occurrence: None)
  Receive Date: 20091106
  Receipt Date: 20091106
  Transmission Date: 20100525
  Serious: Yes (Hospitalization)
  Sender: FDA-Public Use
  Company Number: None

PATIENT
  Age: 81 Year
  Sex: Male
  Weight: 105 kg

DRUGS (2)
  1. ASPIRIN [Suspect]
     Indication: PAIN
     Dosage: 325 MG EVERY DAY PO
     Route: 048
     Dates: start: 20090108, end: 20090115
  2. FLURBIPROFEN [Suspect]
     Indication: PAIN
     Dosage: 100 MG BID PO
     Route: 048
     Dates: start: 19980421, end: 20090116

REACTIONS (2)
  - DUODENAL ULCER HAEMORRHAGE [None]
  - TREATMENT NONCOMPLIANCE [None]
